FAERS Safety Report 22018421 (Version 1)
Quarter: 2023Q1

REPORT INFORMATION
  Report Type: Spontaneous
  Country: CN (occurrence: CN)
  Receive Date: 20230221
  Receipt Date: 20230221
  Transmission Date: 20230417
  Serious: Yes (Hospitalization, Other)
  Sender: FDA-Public Use
  Company Number: None

PATIENT
  Age: 2 Year
  Sex: Male
  Weight: 11.5 kg

DRUGS (7)
  1. CYCLOPHOSPHAMIDE [Suspect]
     Active Substance: CYCLOPHOSPHAMIDE
     Indication: Acute lymphocytic leukaemia
     Dosage: 0.5 G, ONCE DAILY, DILUTED WITH 250 ML OF (4: 1) GLUCOSE AND SODIUM CHLORIDE, AS A PART OF CAM REGIM
     Route: 041
     Dates: start: 20221214, end: 20221214
  2. DEXTROSE\SODIUM CHLORIDE [Suspect]
     Active Substance: DEXTROSE\SODIUM CHLORIDE
     Indication: Medication dilution
     Dosage: 4:1, 250 ML, ONCE DAILY, USED TO DILUTE 0.5 G CYCLOPHOSPHAMIDE, DOSAGE FORM: INJECTION
     Route: 041
     Dates: start: 20221214, end: 20221214
  3. SODIUM CHLORIDE [Suspect]
     Active Substance: SODIUM CHLORIDE
     Indication: Medication dilution
     Dosage: 0.9%, 1 ML, TWICE A DAY, USED TO DILUTE 0.019 G CYTARABINE, DOSAGE FORM: INJECTION
     Route: 058
     Dates: start: 20221214, end: 20221217
  4. SODIUM CHLORIDE [Suspect]
     Active Substance: SODIUM CHLORIDE
     Dosage: 0.9%, 1 ML, TWICE A DAY, USED TO DILUTE 0.019 G CYTARABINE, DOSAGE FORM: INJECTION
     Route: 058
     Dates: start: 20221221, end: 20221224
  5. MERCAPTOPURINE [Suspect]
     Active Substance: MERCAPTOPURINE
     Indication: Acute lymphocytic leukaemia
     Dosage: 25 MG, ONCE A NIGHT
     Route: 048
     Dates: start: 20221214, end: 20221221
  6. CYTARABINE [Suspect]
     Active Substance: CYTARABINE
     Indication: Acute lymphocytic leukaemia
     Dosage: 0.019 G, TWICE A DAY, DILUTED WITH 1 ML OF 0.9% SODIUM CHLORIDE, AS A PART OF CAM REGIMEN CHEMOTHERA
     Route: 058
     Dates: start: 20221214, end: 20221217
  7. CYTARABINE [Suspect]
     Active Substance: CYTARABINE
     Dosage: 0.019 G, TWICE A DAY, DILUTED WITH 1 ML OF 0.9% SODIUM CHLORIDE, AS A PART OF CAM REGIMEN CHEMOTHERA
     Route: 058
     Dates: start: 20221221, end: 20221224

REACTIONS (1)
  - Myelosuppression [Recovering/Resolving]

NARRATIVE: CASE EVENT DATE: 20221221
